FAERS Safety Report 5622385-0 (Version None)
Quarter: 2008Q1

REPORT INFORMATION
  Report Type: 
  Country: None (occurrence: None)
  Receive Date: 20080211
  Receipt Date: 20080206
  Transmission Date: 20080703
  Serious: Yes (Other)
  Sender: FDA-Public Use
  Company Number: US-GILEAD-2008-0015228

PATIENT
  Sex: Female
  Weight: 78.133 kg

DRUGS (2)
  1. LETAIRIS [Suspect]
     Indication: PULMONARY HYPERTENSION
     Route: 048
     Dates: start: 20070824, end: 20080123
  2. REVATIO [Concomitant]
     Route: 048

REACTIONS (1)
  - OEDEMA PERIPHERAL [None]
